FAERS Safety Report 15799674 (Version 1)
Quarter: 2019Q1

REPORT INFORMATION
  Report Type: Spontaneous
  Country: US (occurrence: US)
  Receive Date: 20190108
  Receipt Date: 20190108
  Transmission Date: 20190417
  Serious: No
  Sender: FDA-Public Use
  Company Number: US-TESARO-2018-TSO2524-US

PATIENT
  Sex: Female
  Weight: 77.98 kg

DRUGS (1)
  1. ZEJULA [Suspect]
     Active Substance: NIRAPARIB
     Indication: OVARIAN CANCER RECURRENT
     Dosage: 300 MG, UNK

REACTIONS (2)
  - Vomiting [Unknown]
  - Nausea [Unknown]
